FAERS Safety Report 15401755 (Version 2)
Quarter: 2018Q4

REPORT INFORMATION
  Report Type: Report from Study
  Country: FR (occurrence: FR)
  Receive Date: 20180919
  Receipt Date: 20181008
  Transmission Date: 20190204
  Serious: Yes (Hospitalization, Other)
  Sender: FDA-Public Use
  Company Number: FR-AMGEN-FRANI2015060002

PATIENT
  Age: 58 Year
  Sex: Male
  Weight: 58 kg

DRUGS (12)
  1. ETANERCEPT [Suspect]
     Active Substance: ETANERCEPT
     Dosage: 50 MG, 2 TIMES/WK
     Route: 058
     Dates: start: 20170612, end: 20171101
  2. DIPROLENE [Concomitant]
     Active Substance: BETAMETHASONE DIPROPIONATE
     Dosage: UNK
  3. ETANERCEPT [Suspect]
     Active Substance: ETANERCEPT
     Indication: PSORIASIS
     Dosage: 50 MG, QWK
     Route: 058
     Dates: start: 20140903, end: 201706
  4. DERMOVAL (BETAMETHASONE VALERATE) [Concomitant]
     Active Substance: BETAMETHASONE VALERATE
     Dosage: UNK
  5. DERMOVAL (BETAMETHASONE VALERATE) [Concomitant]
     Active Substance: BETAMETHASONE VALERATE
     Dosage: UNK
  6. HUMIRA [Suspect]
     Active Substance: ADALIMUMAB
     Indication: PRODUCT USED FOR UNKNOWN INDICATION
     Dosage: UNK
     Route: 065
     Dates: start: 20171121, end: 201801
  7. SPECIAFOLDINE [Concomitant]
     Active Substance: FOLIC ACID
     Dosage: UNK
     Dates: start: 20080428
  8. PRAVASTATIN. [Concomitant]
     Active Substance: PRAVASTATIN
     Dosage: UNK
     Dates: start: 2009, end: 20180703
  9. CLOBETASOL PROPIONATE. [Concomitant]
     Active Substance: CLOBETASOL PROPIONATE
     Dosage: UNK
  10. METHOTREXATE SODIUM. [Suspect]
     Active Substance: METHOTREXATE SODIUM
     Indication: PRODUCT USED FOR UNKNOWN INDICATION
     Dosage: UNK
     Route: 065
     Dates: start: 200809, end: 201408
  11. FOLIC ACID. [Concomitant]
     Active Substance: FOLIC ACID
     Dosage: 5 MG, WEEKLY
     Route: 048
     Dates: start: 2017, end: 201807
  12. SORIATANE [Concomitant]
     Active Substance: ACITRETIN
     Dosage: UNK

REACTIONS (4)
  - Eosinophilia [Recovered/Resolved]
  - Dermatitis exfoliative generalised [Not Recovered/Not Resolved]
  - Psoriasis [Recovered/Resolved]
  - Injection site reaction [Unknown]

NARRATIVE: CASE EVENT DATE: 20171113
